FAERS Safety Report 9194150 (Version 1)
Quarter: 2013Q1

REPORT INFORMATION
  Report Type: Spontaneous
  Country: CN (occurrence: CN)
  Receive Date: 20130327
  Receipt Date: 20130327
  Transmission Date: 20140127
  Serious: Yes (Death, Other)
  Sender: FDA-Public Use
  Company Number: CN-CELGENEUS-035-21660-13032822

PATIENT
  Sex: 0

DRUGS (4)
  1. ABRAXANE [Suspect]
     Indication: ADENOCARCINOMA PANCREAS
     Route: 041
  2. ABRAXANE [Suspect]
     Route: 041
  3. ABRAXANE [Suspect]
     Route: 041
  4. GEMCITABINE [Suspect]
     Indication: ADENOCARCINOMA PANCREAS
     Route: 041

REACTIONS (16)
  - Death [Fatal]
  - Neutropenia [Unknown]
  - Febrile neutropenia [Recovered/Resolved]
  - Adenocarcinoma pancreas [Unknown]
  - Thrombocytopenia [Unknown]
  - Peripheral sensory neuropathy [Not Recovered/Not Resolved]
  - Alanine aminotransferase increased [Not Recovered/Not Resolved]
  - Anaemia [Unknown]
  - Nausea [Unknown]
  - Vomiting [Unknown]
  - Fatigue [Unknown]
  - Alopecia [Unknown]
  - Diarrhoea [Unknown]
  - Rash [Unknown]
  - Aspartate aminotransferase increased [Unknown]
  - Blood bilirubin increased [Unknown]
